FAERS Safety Report 9843519 (Version 1)
Quarter: 2013Q4

REPORT INFORMATION
  Report Type: Spontaneous
  Country: US (occurrence: None)
  Receive Date: 20131219
  Receipt Date: 20131219
  Transmission Date: 20140711
  Serious: Yes (Other)
  Sender: FDA-Public Use
  Company Number: 163-20785-12070141

PATIENT
  Age: 78 Year
  Sex: Male
  Weight: 70.3 kg

DRUGS (11)
  1. THALOMID (THALIDOMIDE) (50 MILLIGRAM, CAPSULES) [Suspect]
     Indication: PLASMA CELL MYELOMA
     Route: 048
     Dates: start: 201005, end: 2010
  2. ZOMETA(ZOLEDRONIC ACID)(UNKNOWN) [Concomitant]
  3. VITAMIN B6(PYRIDOXINE HYDROCHLORIDE)(UNKNOWN) [Concomitant]
  4. PROTONIX(PANTOPRAZOLE)(TABLETS) [Concomitant]
  5. MIRALAX(MACROGOL)(UNKNOWN) [Concomitant]
  6. COREG(CARVEDILOL)(TABLETS) [Concomitant]
  7. CALCIUM CITRATE +D(CALCIUM CITRATE W/COLECALCIFEROL)(UNKNOWN) [Concomitant]
  8. ALTACE(RAMIPRIL)(UNKNOWN) [Concomitant]
  9. BABY ASPIRIN(ACETYLSALICYLIC ACID)(UNKNOWN) [Concomitant]
  10. IMODIUM AD(LOPERAMIDE HYDROCHLORIDE)(UNKNOWN) [Concomitant]
  11. NORPACE(DISOPYRAMIDE PHOSPHATE)(CAPSULES) [Concomitant]

REACTIONS (4)
  - Dysgeusia [None]
  - Ageusia [None]
  - Neuropathy peripheral [None]
  - Rhinorrhoea [None]
